FAERS Safety Report 12703024 (Version 1)
Quarter: 2016Q3

REPORT INFORMATION
  Report Type: Spontaneous
  Country: JP (occurrence: JP)
  Receive Date: 20160831
  Receipt Date: 20160831
  Transmission Date: 20161109
  Serious: Yes (Other)
  Sender: FDA-Public Use
  Company Number: JP-PFIZER INC-2016392897

PATIENT
  Age: 74 Year
  Sex: Female

DRUGS (12)
  1. TRAMAL OD [Suspect]
     Active Substance: TRAMADOL
     Indication: PAIN
     Dosage: 75 MG, DAILY
     Route: 048
     Dates: start: 20160729, end: 20160803
  2. LIVALO [Suspect]
     Active Substance: PITAVASTATIN CALCIUM
     Dosage: 1 DF, DAILY
     Route: 048
  3. LAC B [Suspect]
     Active Substance: BIFIDOBACTERIUM SPP.
     Dosage: 90 MG, DAILY
     Route: 048
  4. CALONAL [Suspect]
     Active Substance: ACETAMINOPHEN
     Dosage: 6 DF, DAILY
     Route: 048
  5. MEILAX [Suspect]
     Active Substance: ETHYL LOFLAZEPATE
     Dosage: 1 DF, DAILY
     Route: 048
  6. MYSLEE [Suspect]
     Active Substance: ZOLPIDEM TARTRATE
     Dosage: 10 MG, DAILY
     Route: 048
  7. NORVASC [Suspect]
     Active Substance: AMLODIPINE BESYLATE
     Dosage: 5 MG, DAILY
     Route: 048
  8. MUCOSTA [Suspect]
     Active Substance: REBAMIPIDE
     Dosage: 3 DF, 3X/DAY
     Route: 048
  9. TRAMAL OD [Suspect]
     Active Substance: TRAMADOL
     Dosage: 125 MG, DAILY
     Route: 048
     Dates: start: 20160804, end: 20160806
  10. NEXIUM [Suspect]
     Active Substance: ESOMEPRAZOLE MAGNESIUM
     Dosage: 1 DF, DAILY
     Route: 048
  11. DEPAS [Suspect]
     Active Substance: ETIZOLAM
     Dosage: 1 DF, DAILY
     Route: 048
  12. MUCOSOLVAN [Suspect]
     Active Substance: AMBROXOL HYDROCHLORIDE
     Dosage: 3 DF, 3X/DAY
     Route: 048

REACTIONS (4)
  - Neurogenic bladder [Unknown]
  - Anorectal disorder [Unknown]
  - Urinary retention [Not Recovered/Not Resolved]
  - Constipation [Unknown]

NARRATIVE: CASE EVENT DATE: 20160805
